FAERS Safety Report 4438935-6 (Version None)
Quarter: 2004Q3

REPORT INFORMATION
  Report Type: 
  Country: None (occurrence: None)
  Receive Date: 20040901
  Receipt Date: 20040625
  Transmission Date: 20050211
  Serious: Yes (Hospitalization, Other)
  Sender: FDA-Public Use
  Company Number: GB-AMGEN-US082173

PATIENT
  Sex: Female

DRUGS (2)
  1. ENBREL [Suspect]
     Indication: DRUG USE FOR UNKNOWN INDICATION
     Route: 058
     Dates: start: 20030902, end: 20040524
  2. CORTICOSTEROID NOS [Concomitant]
     Dates: start: 20040101

REACTIONS (3)
  - MONONEUROPATHY [None]
  - RHEUMATOID VASCULITIS [None]
  - SENSORY LOSS [None]
